FAERS Safety Report 10224090 (Version 1)
Quarter: 2014Q2

REPORT INFORMATION
  Report Type: Spontaneous
  Country: GB (occurrence: GB)
  Receive Date: 20140609
  Receipt Date: 20140609
  Transmission Date: 20141212
  Serious: Yes (Hospitalization)
  Sender: FDA-Public Use
  Company Number: PHHY2014GB066636

PATIENT
  Age: 89 Year
  Sex: Male
  Weight: 83 kg

DRUGS (2)
  1. BISOPROLOL [Suspect]
     Indication: HYPERTENSION
     Route: 048
     Dates: start: 20140508, end: 20140518
  2. ATENOLOL [Concomitant]
     Dosage: 100 MG, UNK

REACTIONS (3)
  - Dyspnoea exertional [Recovered/Resolved]
  - Labelled drug-drug interaction medication error [Unknown]
  - Left ventricular dysfunction [Unknown]
